FAERS Safety Report 10594311 (Version 1)
Quarter: 2014Q4

REPORT INFORMATION
  Report Type: Spontaneous
  Country: RU (occurrence: RU)
  Receive Date: 20141119
  Receipt Date: 20141119
  Transmission Date: 20150529
  Serious: Yes (Life-Threatening, Other)
  Sender: FDA-Public Use
  Company Number: RU-ASTRAZENECA-2014SE86274

PATIENT
  Age: 23295 Day
  Sex: Male
  Weight: 70 kg

DRUGS (9)
  1. BRILINTA [Suspect]
     Active Substance: TICAGRELOR
     Indication: ELECTROCARDIOGRAM ST SEGMENT ELEVATION
     Route: 048
     Dates: start: 20141012, end: 20141018
  2. BRILINTA [Suspect]
     Active Substance: TICAGRELOR
     Indication: ELECTROCARDIOGRAM ST SEGMENT ELEVATION
     Route: 048
     Dates: start: 20141023
  3. BRILINTA [Suspect]
     Active Substance: TICAGRELOR
     Indication: ACUTE CORONARY SYNDROME
     Route: 048
     Dates: start: 20141012, end: 20141018
  4. BRILINTA [Suspect]
     Active Substance: TICAGRELOR
     Indication: ACUTE CORONARY SYNDROME
     Route: 048
     Dates: start: 20141023
  5. CONCOR [Concomitant]
     Active Substance: BISOPROLOL FUMARATE
     Route: 048
     Dates: start: 20141023
  6. CEREPRO [Concomitant]
     Route: 042
     Dates: start: 20141023
  7. THROMBO ASS [Concomitant]
     Active Substance: ASPIRIN
     Route: 048
     Dates: start: 20141023
  8. ATORVASTATIN [Concomitant]
     Active Substance: ATORVASTATIN
     Route: 048
     Dates: start: 20141023
  9. VEROSPIRON (SPIRONOLACTONE) [Concomitant]
     Route: 048
     Dates: start: 20141023

REACTIONS (3)
  - Ischaemic stroke [Unknown]
  - Thrombosis in device [Unknown]
  - Quadriparesis [Unknown]

NARRATIVE: CASE EVENT DATE: 20141018
